FAERS Safety Report 5753146-X (Version None)
Quarter: 2008Q2

REPORT INFORMATION
  Report Type: 
  Country: None (occurrence: None)
  Receive Date: 20080530
  Receipt Date: 20080519
  Transmission Date: 20081010
  Serious: Yes (Hospitalization, Other)
  Sender: FDA-Public Use
  Company Number: US-JNJFOC-20080504320

PATIENT
  Sex: Female

DRUGS (4)
  1. DURAGESIC-100 [Suspect]
     Indication: OSTEOPOROSIS
     Route: 062
  2. PREVACID [Concomitant]
     Indication: GASTRIC DISORDER
     Route: 048
  3. ATIVAN [Concomitant]
     Indication: MUSCLE RELAXANT THERAPY
     Route: 048
  4. XOPENEX [Concomitant]
     Indication: ASTHMA
     Route: 055

REACTIONS (2)
  - NAUSEA [None]
  - THROAT TIGHTNESS [None]
